FAERS Safety Report 23420378 (Version 1)
Quarter: 2024Q1

REPORT INFORMATION
  Report Type: Spontaneous
  Country: US (occurrence: US)
  Receive Date: 20240119
  Receipt Date: 20240119
  Transmission Date: 20240410
  Serious: Yes (Other)
  Sender: FDA-Public Use
  Company Number: US-AUROBINDO-AUR-APL-2024-001478

PATIENT
  Age: 79 Year
  Sex: Female

DRUGS (4)
  1. METHYLPREDNISOLONE [Suspect]
     Active Substance: METHYLPREDNISOLONE
     Indication: Amyloid related imaging abnormality-oedema/effusion
     Dosage: UNK
     Route: 065
  2. LECANEMAB [Concomitant]
     Active Substance: LECANEMAB
     Indication: Dementia Alzheimer^s type
     Dosage: 10 MILLIGRAM/KILOGRAM, 2 WEEKS
     Route: 065
  3. SOLU-MEDROL [Concomitant]
     Active Substance: METHYLPREDNISOLONE SODIUM SUCCINATE
     Indication: Amyloid related imaging abnormality-oedema/effusion
     Dosage: 1 GRAM, DAILY
     Route: 042
  4. HEPARIN [Concomitant]
     Active Substance: HEPARIN SODIUM
     Indication: Atrial fibrillation
     Dosage: UNK
     Route: 065

REACTIONS (1)
  - Drug ineffective [Unknown]
